FAERS Safety Report 6841159-6 (Version None)
Quarter: 2010Q3

REPORT INFORMATION
  Report Type: 
  Country: None (occurrence: None)
  Receive Date: 20100714
  Receipt Date: 20070628
  Transmission Date: 20110219
  Serious: No
  Sender: FDA-Public Use
  Company Number: US-PFIZER INC-2007054250

PATIENT
  Sex: Female
  Weight: 49.9 kg

DRUGS (8)
  1. CHANTIX [Suspect]
     Indication: SMOKING CESSATION THERAPY
     Dates: start: 20070501
  2. SULFASALAZINE [Concomitant]
  3. NORVASC [Concomitant]
  4. AVAPRO [Concomitant]
  5. ARAVA [Concomitant]
  6. PREDNISONE TAB [Concomitant]
  7. PULMICORT [Concomitant]
  8. VITAMINS [Concomitant]

REACTIONS (2)
  - NAUSEA [None]
  - VOMITING [None]
